FAERS Safety Report 5263764-3 (Version None)
Quarter: 2007Q1

REPORT INFORMATION
  Report Type: 
  Country: None (occurrence: None)
  Receive Date: 20061213
  Receipt Date: 20030929
  Transmission Date: 20070707
  Serious: Yes (Other)
  Sender: FDA-Public Use
  Company Number: 2003UW12451

PATIENT
  Age: 74 Year
  Sex: Female
  Weight: 72.5755 kg

DRUGS (2)
  1. IRESSA [Suspect]
     Indication: NON-SMALL CELL LUNG CANCER
     Dosage: 250 MG QD PO
     Route: 048
     Dates: start: 20020101, end: 20030901
  2. OXYGEN [Concomitant]

REACTIONS (9)
  - BLEPHARITIS [None]
  - CATARACT [None]
  - DRY SKIN [None]
  - INGROWN HAIR [None]
  - MADAROSIS [None]
  - ONYCHOCLASIS [None]
  - PRURITUS [None]
  - RASH PAPULAR [None]
  - VISION BLURRED [None]
